FAERS Safety Report 8387523-8 (Version None)
Quarter: 2012Q2

REPORT INFORMATION
  Report Type: 
  Country: None (occurrence: None)
  Receive Date: 20120525
  Receipt Date: 20120522
  Transmission Date: 20120825
  Serious: Yes (Other)
  Sender: FDA-Public Use
  Company Number: PHHY2011CA112575

PATIENT
  Sex: Female

DRUGS (2)
  1. AFINITOR [Suspect]
     Indication: NEUROENDOCRINE TUMOUR
     Dosage: 10 MG EVERY DAY
     Route: 048
     Dates: start: 20111121
  2. SANDOSTATIN LAR [Suspect]
     Indication: NEUROENDOCRINE TUMOUR
     Dosage: 30 MG, EVERY 2 WEEKS
     Route: 030
     Dates: start: 20110526

REACTIONS (5)
  - NEOPLASM PROGRESSION [None]
  - NEOPLASM MALIGNANT [None]
  - FATIGUE [None]
  - MENSTRUATION DELAYED [None]
  - MENORRHAGIA [None]
